FAERS Safety Report 8024363-3 (Version None)
Quarter: 2012Q1

REPORT INFORMATION
  Report Type: 
  Country: None (occurrence: None)
  Receive Date: 20120105
  Receipt Date: 20120102
  Transmission Date: 20120608
  Serious: Yes (Other)
  Sender: FDA-Public Use
  Company Number: PHHY2012NL000474

PATIENT
  Sex: Male

DRUGS (3)
  1. ZOMETA [Suspect]
     Dosage: 4 MG, PER 100 ML INFUSION IV IN 20 MINUTES 1X PER 28 DAYS
     Dates: start: 20111201
  2. ZOMETA [Suspect]
     Indication: PROSTATE CANCER METASTATIC
     Dosage: 4 MG, PER 100 ML INFUSION IV IN 20 MINUTES 1X PER 28 DAYS
     Dates: start: 20100119
  3. ZOMETA [Suspect]
     Dosage: 4 MG, PER 100 ML INFUSION IV IN 20 MINUTES 1X PER 28 DAYS
     Dates: start: 20120102

REACTIONS (2)
  - MUSCULOSKELETAL CHEST PAIN [None]
  - RIB FRACTURE [None]
